FAERS Safety Report 21758464 (Version 1)
Quarter: 2022Q4

REPORT INFORMATION
  Report Type: Spontaneous
  Country: US (occurrence: US)
  Receive Date: 20221221
  Receipt Date: 20221221
  Transmission Date: 20230113
  Serious: No
  Sender: FDA-Public Use
  Company Number: US-BRISTOL-MYERS SQUIBB COMPANY-2022-156708

PATIENT
  Age: 82 Year
  Sex: Male

DRUGS (1)
  1. REVLIMID [Suspect]
     Active Substance: LENALIDOMIDE
     Indication: Plasma cell myeloma
     Dosage: FREQ: EVERY OTHER DAY FOR 2 WEEKS, THEN OFF FOR TWO WEEKS
     Route: 048
     Dates: start: 201910

REACTIONS (2)
  - Teeth brittle [Unknown]
  - Off label use [Unknown]

NARRATIVE: CASE EVENT DATE: 20210101
